FAERS Safety Report 10061480 (Version 1)
Quarter: 2014Q2

REPORT INFORMATION
  Report Type: Spontaneous
  Country: RS (occurrence: RS)
  Receive Date: 20140407
  Receipt Date: 20140407
  Transmission Date: 20141212
  Serious: Yes (Other)
  Sender: FDA-Public Use
  Company Number: RS-BAYER-2014-049410

PATIENT
  Age: 24 Year
  Sex: Male

DRUGS (1)
  1. GADOVIST [Suspect]
     Indication: NUCLEAR MAGNETIC RESONANCE IMAGING BRAIN
     Dosage: 5 ML, ONCE
     Route: 042
     Dates: start: 20140327, end: 20140327

REACTIONS (6)
  - Laryngospasm [Recovered/Resolved]
  - Lacrimation increased [Recovered/Resolved]
  - Sneezing [Recovered/Resolved]
  - Salivary hypersecretion [Recovered/Resolved]
  - Conjunctival hyperaemia [Recovered/Resolved]
  - Urticaria [Recovered/Resolved]
